FAERS Safety Report 8607892 (Version 3)
Quarter: 2013Q3

REPORT INFORMATION
  Report Type: Spontaneous
  Country: US (occurrence: US)
  Receive Date: 20120611
  Receipt Date: 20130927
  Transmission Date: 20140515
  Serious: No
  Sender: FDA-Public Use
  Company Number: US-ASTRAZENECA-2012SE35429

PATIENT
  Age: 63 Year
  Sex: 0
  Weight: 63.5 kg

DRUGS (9)
  1. NEXIUM [Suspect]
     Indication: GASTROOESOPHAGEAL REFLUX DISEASE
     Dosage: 1 TIME A DAY
     Route: 048
     Dates: start: 1995, end: 2000
  2. NEXIUM [Suspect]
     Indication: GASTRIC DISORDER
     Dosage: 1 TIME A DAY
     Route: 048
     Dates: start: 1995, end: 2000
  3. NEXIUM [Suspect]
     Indication: GASTROOESOPHAGEAL REFLUX DISEASE
     Route: 048
     Dates: start: 2005
  4. NEXIUM [Suspect]
     Indication: GASTRIC DISORDER
     Route: 048
     Dates: start: 2005
  5. NEXIUM [Suspect]
     Indication: GASTROOESOPHAGEAL REFLUX DISEASE
     Route: 048
     Dates: start: 20120110
  6. NEXIUM [Suspect]
     Indication: GASTRIC DISORDER
     Route: 048
     Dates: start: 20120110
  7. AMLODIPIN [Concomitant]
     Indication: BLOOD PRESSURE ABNORMAL
     Route: 048
     Dates: start: 20120110
  8. TAMSULOSIN HCL [Concomitant]
     Indication: PROSTATIC DISORDER
     Route: 048
     Dates: start: 20120110
  9. CALCIUM [Concomitant]
     Dates: start: 20120110

REACTIONS (3)
  - Osteoporosis [Unknown]
  - Multiple fractures [Unknown]
  - Arthritis [Unknown]
